FAERS Safety Report 23062426 (Version 1)
Quarter: 2023Q4

REPORT INFORMATION
  Report Type: Spontaneous
  Country: US (occurrence: US)
  Receive Date: 20231013
  Receipt Date: 20231013
  Transmission Date: 20240109
  Serious: No
  Sender: FDA-Public Use
  Company Number: US-PFIZER INC-202300325150

PATIENT
  Age: 45 Year
  Sex: Female

DRUGS (8)
  1. IBRANCE [Suspect]
     Active Substance: PALBOCICLIB
     Dosage: 100MG TABLET 1 TABLET BY MOUTH DAILY
     Route: 048
     Dates: start: 202106
  2. EFFEXOR [Concomitant]
     Active Substance: VENLAFAXINE HYDROCHLORIDE
  3. LUPRON DEPOT [Concomitant]
     Active Substance: LEUPROLIDE ACETATE
  4. LEVOTHYROXINE [Concomitant]
     Active Substance: LEVOTHYROXINE
  5. VITAMIN C [Concomitant]
     Active Substance: ASCORBIC ACID
  6. LETROZOLE [Concomitant]
     Active Substance: LETROZOLE
  7. XGEVA [Concomitant]
     Active Substance: DENOSUMAB
  8. VITAMIN D3 [Concomitant]
     Active Substance: CHOLECALCIFEROL

REACTIONS (2)
  - Illness [Recovered/Resolved]
  - Nasopharyngitis [Recovered/Resolved]
